FAERS Safety Report 5764778-7 (Version None)
Quarter: 2008Q2

REPORT INFORMATION
  Report Type: 
  Country: None (occurrence: None)
  Receive Date: 20080611
  Receipt Date: 20080603
  Transmission Date: 20081010
  Serious: Yes (Other)
  Sender: FDA-Public Use
  Company Number: PHEH2008US02203

PATIENT
  Sex: Female
  Weight: 67.574 kg

DRUGS (3)
  1. TYZEKA [Suspect]
     Indication: HEPATITIS B
     Dosage: 600 MG, UNK
     Dates: start: 20070501
  2. TRUVADA [Suspect]
     Dosage: 500 MG, UNK
  3. VITAMINS [Suspect]

REACTIONS (3)
  - CAESAREAN SECTION [None]
  - DRUG EXPOSURE DURING PREGNANCY [None]
  - NORMAL NEWBORN [None]
